FAERS Safety Report 15907362 (Version 5)
Quarter: 2019Q2

REPORT INFORMATION
  Report Type: Report from Study
  Country: US (occurrence: US)
  Receive Date: 20190204
  Receipt Date: 20190514
  Transmission Date: 20190711
  Serious: No
  Sender: FDA-Public Use
  Company Number: PHEH2019US004840

PATIENT
  Age: 5 Year
  Sex: Male

DRUGS (4)
  1. ILARIS [Suspect]
     Active Substance: CANAKINUMAB
     Indication: STILL^S DISEASE
     Dosage: UNK
     Route: 058
     Dates: start: 20190203
  2. ILARIS [Suspect]
     Active Substance: CANAKINUMAB
     Indication: JUVENILE IDIOPATHIC ARTHRITIS
     Dosage: UNK, QMO
     Route: 058
     Dates: start: 20190106
  3. ILARIS [Suspect]
     Active Substance: CANAKINUMAB
     Dosage: UNK
     Route: 058
     Dates: start: 20190303
  4. ILARIS [Suspect]
     Active Substance: CANAKINUMAB
     Dosage: 60 MG/KG, QMO
     Route: 058

REACTIONS (5)
  - Therapeutic response shortened [Unknown]
  - Pyrexia [Unknown]
  - Rash [Unknown]
  - Feeling hot [Unknown]
  - Needle issue [Unknown]

NARRATIVE: CASE EVENT DATE: 20190330
